FAERS Safety Report 23500336 (Version 1)
Quarter: 2024Q1

REPORT INFORMATION
  Report Type: Spontaneous
  Country: IT (occurrence: IT)
  Receive Date: 20240208
  Receipt Date: 20240208
  Transmission Date: 20240410
  Serious: Yes (Death, Hospitalization, Other)
  Sender: FDA-Public Use
  Company Number: None

PATIENT
  Age: 62 Year
  Sex: Female

DRUGS (5)
  1. DOCETAXEL [Suspect]
     Active Substance: DOCETAXEL\DOCETAXEL ANHYDROUS
     Indication: Adjuvant therapy
     Dosage: 75MG/M2 EVERY 3 WEEKS.
     Dates: start: 20231228, end: 20231228
  2. CYCLOPHOSPHAMIDE [Suspect]
     Active Substance: CYCLOPHOSPHAMIDE
     Indication: Adjuvant therapy
     Dosage: EXPECTED DOSAGE 600MG/M2 Q21
     Dates: start: 20231228, end: 20231228
  3. ATORVASTATIN [Concomitant]
     Active Substance: ATORVASTATIN
  4. RAMIPRIL HC [Concomitant]
     Dosage: 5+5 MG/DIE
  5. ASPIRIN [Concomitant]
     Active Substance: ASPIRIN

REACTIONS (5)
  - Leukopenia [Not Recovered/Not Resolved]
  - Cardiac arrest [Fatal]
  - Thrombocytopenia [Not Recovered/Not Resolved]
  - Intestinal infarction [Fatal]
  - Intestinal perforation [Fatal]

NARRATIVE: CASE EVENT DATE: 20240104
